FAERS Safety Report 7516026-5 (Version None)
Quarter: 2011Q2

REPORT INFORMATION
  Report Type: 
  Country: None (occurrence: None)
  Receive Date: 20110601
  Receipt Date: 20110523
  Transmission Date: 20111010
  Serious: Yes (Disabling, Other)
  Sender: FDA-Public Use
  Company Number: US-ROCHE-665311

PATIENT
  Sex: Female
  Weight: 46.7 kg

DRUGS (11)
  1. ACCUTANE [Suspect]
     Route: 065
     Dates: start: 19970906, end: 19971110
  2. SOTRET [Suspect]
     Indication: ROSACEA
     Route: 065
     Dates: start: 20040601, end: 20040801
  3. SONATA [Concomitant]
  4. ASPIRIN [Concomitant]
  5. ACCUTANE [Suspect]
     Route: 065
     Dates: start: 20040618, end: 20040718
  6. CALCIUM CARBONATE [Concomitant]
  7. RETIN-A [Concomitant]
  8. ESTRADIOL [Concomitant]
  9. ACCUTANE [Suspect]
     Indication: ACNE
     Dosage: OTHER INDICATION: ROSACEA
     Route: 065
     Dates: start: 19970606, end: 19970807
  10. LEVOTHYROXINE SODIUM [Concomitant]
  11. LIPITOR [Concomitant]

REACTIONS (14)
  - HAEMORRHOIDS [None]
  - APHTHOUS STOMATITIS [None]
  - SMALL INTESTINAL OBSTRUCTION [None]
  - CROHN'S DISEASE [None]
  - INFLAMMATORY BOWEL DISEASE [None]
  - ORAL HERPES [None]
  - DEPRESSION [None]
  - HEADACHE [None]
  - SACROILIITIS [None]
  - COLITIS ULCERATIVE [None]
  - PROCTITIS [None]
  - BURSITIS [None]
  - HYPERKERATOSIS [None]
  - FIBROMYALGIA [None]
